FAERS Safety Report 5954270-9 (Version None)
Quarter: 2008Q4

REPORT INFORMATION
  Report Type: 
  Country: None (occurrence: None)
  Receive Date: 20081113
  Receipt Date: 20081113
  Transmission Date: 20090506
  Serious: Yes (Hospitalization)
  Sender: FDA-Public Use
  Company Number: None

PATIENT
  Sex: Female
  Weight: 64.8644 kg

DRUGS (3)
  1. IXABEPILONE [Suspect]
     Indication: COLON CANCER METASTATIC
     Dosage: 30 MG/M2 IV Q 3 WKS
     Route: 042
  2. IXABEPILONE [Suspect]
     Indication: COLON CANCER STAGE IV
     Dosage: 30 MG/M2 IV Q 3 WKS
     Route: 042
  3. DASATINIB [Suspect]
     Indication: COLON CANCER STAGE IV
     Dosage: 100 MG PO QD
     Route: 048

REACTIONS (8)
  - COUGH [None]
  - DYSPNOEA EXERTIONAL [None]
  - FATIGUE [None]
  - FLATULENCE [None]
  - NAUSEA [None]
  - NO THERAPEUTIC RESPONSE [None]
  - PRODUCTIVE COUGH [None]
  - VOMITING [None]
